FAERS Safety Report 10410386 (Version 1)
Quarter: 2014Q2

REPORT INFORMATION
  Report Type: Spontaneous
  Country: US (occurrence: None)
  Receive Date: 20140530
  Receipt Date: 20140530
  Transmission Date: 20141212
  Serious: No
  Sender: FDA-Public Use
  Company Number: 226033LEO

PATIENT
  Age: 53 Year
  Sex: Female

DRUGS (1)
  1. PICATO [Suspect]
     Indication: NEOPLASM MALIGNANT
     Dosage: 3 TREATMENTS, 3 DAYS EACH
     Dates: start: 20140205

REACTIONS (7)
  - Skin tightness [None]
  - Application site vesicles [None]
  - Application site discharge [None]
  - Haemorrhage [None]
  - Eye swelling [None]
  - Visual acuity reduced [None]
  - Application site erythema [None]
